FAERS Safety Report 21810293 (Version 1)
Quarter: 2023Q1

REPORT INFORMATION
  Report Type: Report from Study
  Country: US (occurrence: US)
  Receive Date: 20230103
  Receipt Date: 20230103
  Transmission Date: 20230418
  Serious: No
  Sender: FDA-Public Use
  Company Number: US-ABBVIE-4226805

PATIENT
  Sex: Male
  Weight: 79.378 kg

DRUGS (3)
  1. HUMIRA [Suspect]
     Active Substance: ADALIMUMAB
     Indication: Crohn^s disease
     Route: 058
     Dates: start: 202201
  2. VITAMIN D [Concomitant]
     Active Substance: VITAMIN D NOS
     Indication: Vitamin supplementation
  3. CALCIUM [Concomitant]
     Active Substance: CALCIUM
     Indication: Mineral supplementation

REACTIONS (4)
  - Influenza [Recovered/Resolved]
  - Injection site papule [Recovered/Resolved]
  - Injection site pain [Not Recovered/Not Resolved]
  - Anxiety [Unknown]

NARRATIVE: CASE EVENT DATE: 20220101
